FAERS Safety Report 13404636 (Version 1)
Quarter: 2017Q2

REPORT INFORMATION
  Report Type: Spontaneous
  Country: US (occurrence: US)
  Receive Date: 20170405
  Receipt Date: 20170405
  Transmission Date: 20170830
  Serious: Yes (Other)
  Sender: FDA-Public Use
  Company Number: US-BECTON DICKINSON-2017BDN00098

PATIENT
  Age: 65 Year
  Sex: Female
  Weight: 86.17 kg

DRUGS (5)
  1. CYCLOSPORINE. [Concomitant]
     Active Substance: CYCLOSPORINE
  2. PREDNISONE. [Concomitant]
     Active Substance: PREDNISONE
  3. UNSPECIFIED BLOOD PRESSURE MEDICATION [Concomitant]
     Active Substance: UNSPECIFIED INGREDIENT
  4. ASPIRIN. [Concomitant]
     Active Substance: ASPIRIN
  5. CHLORAPREP [Suspect]
     Active Substance: CHLORHEXIDINE GLUCONATE\ISOPROPYL ALCOHOL
     Indication: INFECTION PROPHYLAXIS
     Dosage: UNK
     Route: 061
     Dates: start: 20150615, end: 20150615

REACTIONS (11)
  - Scar [Recovering/Resolving]
  - Application site pain [Recovering/Resolving]
  - Hip fracture [Unknown]
  - Fall [Recovered/Resolved]
  - Blister [Recovering/Resolving]
  - Muscle tightness [Recovering/Resolving]
  - Skin erosion [Recovering/Resolving]
  - Bedridden [Unknown]
  - Chemical burn [Recovering/Resolving]
  - Muscular weakness [Recovering/Resolving]
  - Pain [Recovering/Resolving]

NARRATIVE: CASE EVENT DATE: 201506
